FAERS Safety Report 9170376 (Version 1)
Quarter: 2013Q1

REPORT INFORMATION
  Report Type: Spontaneous
  Country: US (occurrence: US)
  Receive Date: 20130319
  Receipt Date: 20130319
  Transmission Date: 20140127
  Serious: Yes (Hospitalization)
  Sender: FDA-Public Use
  Company Number: US-SANOFI-AVENTIS-2013SA027095

PATIENT
  Sex: 0

DRUGS (2)
  1. LANTUS [Suspect]
     Route: 051
  2. APIDRA [Suspect]
     Route: 058

REACTIONS (1)
  - Hospitalisation [Unknown]
